FAERS Safety Report 6662884-6 (Version None)
Quarter: 2010Q2

REPORT INFORMATION
  Report Type: 
  Country: None (occurrence: None)
  Receive Date: 20100401
  Receipt Date: 20100324
  Transmission Date: 20101027
  Serious: Yes (Hospitalization)
  Sender: FDA-Public Use
  Company Number: US-JNJFOC-20091106622

PATIENT
  Sex: Male
  Weight: 111.59 kg

DRUGS (9)
  1. DURAGESIC-100 [Suspect]
     Indication: BACK PAIN
     Route: 062
     Dates: start: 20070101, end: 20091101
  2. DURAGESIC-100 [Suspect]
     Route: 062
     Dates: start: 20091101
  3. LONG ACTING INSULIN [Concomitant]
     Indication: DIABETES MELLITUS
     Route: 058
  4. COUMADIN [Concomitant]
     Indication: ANTICOAGULANT THERAPY
     Route: 048
  5. REGULAR INSULIN [Concomitant]
     Indication: DIABETES MELLITUS
     Route: 058
     Dates: start: 20020101
  6. BYETTA [Concomitant]
     Indication: DIABETES MELLITUS
     Route: 058
     Dates: start: 20020101
  7. ZOCOR [Concomitant]
     Indication: BLOOD CHOLESTEROL INCREASED
     Route: 048
     Dates: start: 20080101
  8. BLOOD PRESSURE MEDICATION NOS [Concomitant]
     Indication: BLOOD PRESSURE
     Route: 048
  9. UNKNOWN MEDICATION [Concomitant]
     Indication: GOUT
     Route: 048

REACTIONS (5)
  - ARTHRITIS [None]
  - DRUG TOLERANCE [None]
  - INADEQUATE ANALGESIA [None]
  - INSOMNIA [None]
  - INTERVERTEBRAL DISC SPACE NARROWING [None]
